FAERS Safety Report 15132771 (Version 2)
Quarter: 2018Q3

REPORT INFORMATION
  Report Type: Spontaneous
  Country: US (occurrence: US)
  Receive Date: 20180712
  Receipt Date: 20180810
  Transmission Date: 20181010
  Serious: Yes (Other)
  Sender: FDA-Public Use
  Company Number: US-ELI_LILLY_AND_COMPANY-US201807004752

PATIENT
  Sex: Female

DRUGS (2)
  1. VERZENIO [Suspect]
     Active Substance: ABEMACICLIB
     Dosage: 100 MG, UNKNOWN
     Route: 048
     Dates: end: 201807
  2. VERZENIO [Suspect]
     Active Substance: ABEMACICLIB
     Indication: BREAST CANCER FEMALE
     Dosage: 150 MG, BID
     Route: 048
     Dates: start: 20180615

REACTIONS (6)
  - White blood cell count decreased [Unknown]
  - Malaise [Unknown]
  - Limb discomfort [Unknown]
  - Anxiety [Unknown]
  - Urinary tract infection [Unknown]
  - Blood count abnormal [Unknown]
